FAERS Safety Report 5897772-6 (Version None)
Quarter: 2008Q3

REPORT INFORMATION
  Report Type: 
  Country: None (occurrence: None)
  Receive Date: 20080925
  Receipt Date: 20080918
  Transmission Date: 20090109
  Serious: Yes (Hospitalization, Other)
  Sender: FDA-Public Use
  Company Number: PHHY2008JP21998

PATIENT
  Age: 1 Year
  Sex: Female

DRUGS (1)
  1. TEGRETOL [Suspect]
     Indication: CONVULSION
     Dosage: 80 MG, UNK
     Route: 048
     Dates: start: 20080903, end: 20080905

REACTIONS (9)
  - BLOOD OSMOLARITY ABNORMAL [None]
  - BLOOD SODIUM DECREASED [None]
  - INAPPROPRIATE ANTIDIURETIC HORMONE SECRETION [None]
  - JOINT ANKYLOSIS [None]
  - POLYDIPSIA [None]
  - POLYDIPSIA PSYCHOGENIC [None]
  - POLYURIA [None]
  - STARING [None]
  - URINE SODIUM INCREASED [None]
